FAERS Safety Report 5354310-4 (Version None)
Quarter: 2007Q2

REPORT INFORMATION
  Report Type: 
  Country: None (occurrence: None)
  Receive Date: 20070521
  Receipt Date: 20070212
  Transmission Date: 20071010
  Serious: No
  Sender: FDA-Public Use
  Company Number: WAES 0702USA01408

PATIENT
  Age: 72 Year
  Sex: Male

DRUGS (6)
  1. JANUVIA [Suspect]
     Dosage: 100 MG/PO
     Route: 048
     Dates: start: 20061101
  2. BETAPACE [Concomitant]
  3. DIOVAN [Concomitant]
  4. VYTORIN [Concomitant]
  5. NYSTATIN [Concomitant]
  6. WARFARIN SODIUM [Concomitant]

REACTIONS (1)
  - RASH PRURITIC [None]
